FAERS Safety Report 19106864 (Version 1)
Quarter: 2021Q2

REPORT INFORMATION
  Report Type: Report from Study
  Country: CH (occurrence: CH)
  Receive Date: 20210408
  Receipt Date: 20210408
  Transmission Date: 20210717
  Serious: Yes (Other)
  Sender: FDA-Public Use
  Company Number: CH-ROCHE-2800457

PATIENT
  Age: 58 Year
  Sex: Female
  Weight: 56.6 kg

DRUGS (3)
  1. CALCIUM D3 [Concomitant]
     Active Substance: CALCIUM\CHOLECALCIFEROL
  2. BLINDED PERTUZUMAB [Suspect]
     Active Substance: PERTUZUMAB
     Indication: HER2 POSITIVE BREAST CANCER
     Dosage: ON 06/MAR/2013, RECEIVED LAST DOSE OF PERTUZUMAB PRIOR TO SERIOUS ADVERSE EVENT (SAE)
     Route: 042
     Dates: start: 20121207
  3. TRASTUZUMAB. [Suspect]
     Active Substance: TRASTUZUMAB
     Indication: HER2 POSITIVE BREAST CANCER
     Dosage: ON 06/MAR/2013, RECEIVED LAST DOSE PRIOR TO SAE
     Route: 041
     Dates: start: 20121207

REACTIONS (1)
  - Cardiac failure [Not Recovered/Not Resolved]

NARRATIVE: CASE EVENT DATE: 20191120
